FAERS Safety Report 8404825-7 (Version None)
Quarter: 2012Q2

REPORT INFORMATION
  Report Type: 
  Country: None (occurrence: None)
  Receive Date: 20120601
  Receipt Date: 20120523
  Transmission Date: 20120825
  Serious: Yes (Other)
  Sender: FDA-Public Use
  Company Number: US-ASTRAZENECA-2012SE33642

PATIENT
  Age: 41 Year
  Sex: Male

DRUGS (2)
  1. NEXIUM [Suspect]
     Route: 048
  2. BACLOFEN [Concomitant]

REACTIONS (6)
  - HYPOAESTHESIA [None]
  - SPINAL CORD INJURY [None]
  - FIBROMYALGIA [None]
  - SPINAL CORD COMPRESSION [None]
  - MYOCARDIAL INFARCTION [None]
  - DEPRESSION [None]
